FAERS Safety Report 4974299-7 (Version None)
Quarter: 2006Q2

REPORT INFORMATION
  Report Type: 
  Country: None (occurrence: None)
  Receive Date: 20060417
  Receipt Date: 20051207
  Transmission Date: 20061013
  Serious: Yes (Hospitalization)
  Sender: FDA-Public Use
  Company Number: US-MERCK-0512USA01519

PATIENT
  Age: 72 Year
  Sex: Female
  Weight: 59 kg

DRUGS (17)
  1. VIOXX [Suspect]
     Indication: ARTHRITIS
     Route: 048
     Dates: start: 20030501, end: 20040101
  2. HYZAAR [Concomitant]
     Route: 048
     Dates: start: 20010501
  3. PRAVACHOL [Concomitant]
     Indication: BLOOD CHOLESTEROL INCREASED
     Route: 065
     Dates: start: 20011101, end: 20031001
  4. PRAVACHOL [Concomitant]
     Indication: BLOOD TRIGLYCERIDES INCREASED
     Route: 065
     Dates: start: 20011101, end: 20031001
  5. GEMFIBROZIL [Concomitant]
     Indication: BLOOD CHOLESTEROL INCREASED
     Route: 065
     Dates: start: 19990101, end: 20031001
  6. GEMFIBROZIL [Concomitant]
     Indication: BLOOD TRIGLYCERIDES INCREASED
     Route: 065
     Dates: start: 19990101, end: 20031001
  7. INDERAL LA [Concomitant]
     Indication: HYPERTENSION
     Route: 065
     Dates: start: 19690101, end: 20050701
  8. AMBIEN [Concomitant]
     Route: 065
  9. OMEPRAZOLE [Concomitant]
     Route: 065
  10. DEXAMETHASONE [Concomitant]
     Route: 065
  11. NITROQUICK [Concomitant]
     Route: 065
  12. FUROSEMIDE [Concomitant]
     Route: 065
  13. VICOPROFEN [Concomitant]
     Indication: PAIN
     Route: 065
     Dates: start: 20020819
  14. NORVASC [Concomitant]
     Indication: CHEST PAIN
     Route: 065
     Dates: start: 20011129, end: 20030519
  15. NORVASC [Concomitant]
     Route: 065
     Dates: end: 20050221
  16. PREMARIN [Concomitant]
     Indication: HORMONE REPLACEMENT THERAPY
     Route: 065
     Dates: start: 19850101
  17. PROPRANOLOL HYDROCHLORIDE [Concomitant]
     Indication: HYPERTENSION
     Route: 065
     Dates: start: 20000630, end: 20050214

REACTIONS (10)
  - ANXIETY [None]
  - CHEST PAIN [None]
  - CORONARY ARTERY DISEASE [None]
  - COUGH [None]
  - DIABETES MELLITUS NON-INSULIN-DEPENDENT [None]
  - GOITRE [None]
  - MYOCARDIAL INFARCTION [None]
  - NECK PAIN [None]
  - PULMONARY EMBOLISM [None]
  - URINARY TRACT INFECTION [None]
